FAERS Safety Report 10234157 (Version 1)
Quarter: 2014Q2

REPORT INFORMATION
  Report Type: Spontaneous
  Country: FR (occurrence: FR)
  Receive Date: 20140612
  Receipt Date: 20140612
  Transmission Date: 20141212
  Serious: Yes (Other)
  Sender: FDA-Public Use
  Company Number: FR-GLAXOSMITHKLINE-B1000875A

PATIENT
  Age: 65 Year
  Sex: Female

DRUGS (2)
  1. SERETIDE [Suspect]
     Indication: CHRONIC OBSTRUCTIVE PULMONARY DISEASE
     Route: 055
     Dates: start: 201401
  2. BRONCHODUAL [Concomitant]
     Indication: CHRONIC OBSTRUCTIVE PULMONARY DISEASE
     Route: 055

REACTIONS (9)
  - Swelling face [Recovering/Resolving]
  - Eyelid oedema [Recovering/Resolving]
  - Conjunctivitis [Recovering/Resolving]
  - Urticaria [Recovering/Resolving]
  - Laryngeal discomfort [Recovering/Resolving]
  - Laryngeal oedema [Recovering/Resolving]
  - Cough [Recovering/Resolving]
  - Pruritus [Recovering/Resolving]
  - Off label use [Unknown]
